FAERS Safety Report 10479081 (Version 1)
Quarter: 2014Q3

REPORT INFORMATION
  Report Type: Spontaneous
  Country: MT (occurrence: MT)
  Receive Date: 20140926
  Receipt Date: 20140926
  Transmission Date: 20150326
  Serious: Yes (Hospitalization, Other)
  Sender: FDA-Public Use
  Company Number: PHHY2014MT122448

PATIENT
  Age: 78 Year
  Sex: Female

DRUGS (5)
  1. AXURA [Concomitant]
     Active Substance: MEMANTINE HYDROCHLORIDE
     Dosage: UNK UKN, UNK
  2. COVERSYL                                /BEL/ [Concomitant]
     Dosage: UNK UKN, UNK
  3. ASPIRIN. [Concomitant]
     Active Substance: ASPIRIN
     Dosage: UNK UKN, UNK
  4. ACLASTA [Suspect]
     Active Substance: ZOLEDRONIC ACID
     Indication: OSTEOPOROSIS POSTMENOPAUSAL
     Dosage: 5 MG,  ONCE YEARLY
     Route: 042
  5. SIMVASTATIN. [Concomitant]
     Active Substance: SIMVASTATIN
     Dosage: UNK UKN, UNK

REACTIONS (2)
  - Syncope [Recovered/Resolved]
  - Blood pressure decreased [Unknown]
